FAERS Safety Report 18278548 (Version 1)
Quarter: 2020Q3

REPORT INFORMATION
  Report Type: Spontaneous
  Country: BR (occurrence: BR)
  Receive Date: 20200917
  Receipt Date: 20200917
  Transmission Date: 20201103
  Serious: Yes (Other)
  Sender: FDA-Public Use
  Company Number: BR-PFIZER INC-2020351385

PATIENT
  Age: 51 Year
  Sex: Male

DRUGS (2)
  1. CARDURAN XL [Suspect]
     Active Substance: DOXAZOSIN MESYLATE
     Indication: PROSTATE INDURATION
     Dosage: 4 MG, 1 TABLET PER DAY
     Dates: start: 2017, end: 202002
  2. DOXAZOSIN [Suspect]
     Active Substance: DOXAZOSIN MESYLATE
     Indication: PROSTATE INDURATION
     Dosage: 1 TABLET PER DAY
     Dates: start: 202002

REACTIONS (1)
  - COVID-19 [Recovered/Resolved]

NARRATIVE: CASE EVENT DATE: 202008
